FAERS Safety Report 17652891 (Version 4)
Quarter: 2020Q2

REPORT INFORMATION
  Report Type: Spontaneous
  Country: DE (occurrence: DE)
  Receive Date: 20200409
  Receipt Date: 20200508
  Transmission Date: 20200713
  Serious: Yes (Death, Hospitalization, Other)
  Sender: FDA-Public Use
  Company Number: DE-BRACCO-2020DE01560

PATIENT
  Age: 71 Year
  Sex: Male

DRUGS (4)
  1. SONOVUE [Suspect]
     Active Substance: SULFUR HEXAFLUORIDE
     Indication: DIAGNOSTIC PROCEDURE
     Dosage: UNK, SINGLE
     Route: 042
     Dates: start: 20200323, end: 20200323
  2. HYDROCHLOROTHIAZIDE. [Concomitant]
     Active Substance: HYDROCHLOROTHIAZIDE
     Dosage: 25 MG
     Dates: start: 20190405
  3. CANDESARTAN. [Concomitant]
     Active Substance: CANDESARTAN
     Dosage: 16 MG
     Dates: start: 20190405
  4. PANTOPRAZOLE [Concomitant]
     Active Substance: PANTOPRAZOLE
     Dosage: 40 MG
     Dates: start: 20200305

REACTIONS (6)
  - Ventricular fibrillation [Unknown]
  - Anaphylactic reaction [Fatal]
  - Bronchospasm [Fatal]
  - Feeling hot [Unknown]
  - Pulseless electrical activity [Fatal]
  - Brain injury [Fatal]

NARRATIVE: CASE EVENT DATE: 20200323
